FAERS Safety Report 7800506-9 (Version None)
Quarter: 2011Q4

REPORT INFORMATION
  Report Type: 
  Country: None (occurrence: None)
  Receive Date: 20111006
  Receipt Date: 20110930
  Transmission Date: 20120403
  Serious: Yes (Hospitalization)
  Sender: FDA-Public Use
  Company Number: US-B.I. PHARMACEUTICALS,INC./RIDGEFIELD-2011-BP-15722BP

PATIENT
  Sex: Female

DRUGS (11)
  1. LASIX [Concomitant]
     Indication: ATRIAL FIBRILLATION
     Route: 048
  2. WELCOR [Concomitant]
     Indication: BLOOD CHOLESTEROL INCREASED
     Route: 048
  3. DEXILANT [Suspect]
     Indication: ABDOMINAL DISCOMFORT
     Dosage: 60 MG
     Route: 048
     Dates: start: 20110307
  4. MULTI-VITAMIN [Concomitant]
     Indication: ROUTINE HEALTH MAINTENANCE
     Route: 048
  5. PRADAXA [Suspect]
     Indication: ATRIAL FIBRILLATION
     Dosage: 300 MG
     Route: 048
     Dates: start: 20110307, end: 20110308
  6. ASPIRIN [Concomitant]
     Indication: ROUTINE HEALTH MAINTENANCE
     Dosage: 81 MG
     Route: 048
  7. SINGULAIR [Concomitant]
     Indication: ASTHMA
     Route: 048
  8. SYMBICORT [Concomitant]
     Indication: ASTHMA
  9. ATROVENT [Concomitant]
     Indication: ASTHMA
  10. LISINOPRIL [Suspect]
     Indication: HYPERTENSION
     Dosage: 10 MG
     Route: 048
     Dates: start: 20110307
  11. CRESTOR [Concomitant]
     Indication: BLOOD CHOLESTEROL INCREASED
     Route: 048

REACTIONS (6)
  - CONVULSION [None]
  - DIZZINESS [None]
  - DIPLOPIA [None]
  - GAIT DISTURBANCE [None]
  - BALANCE DISORDER [None]
  - HEMIPARESIS [None]
